FAERS Safety Report 7399688-5 (Version None)
Quarter: 2011Q2

REPORT INFORMATION
  Report Type: 
  Country: None (occurrence: None)
  Receive Date: 20110405
  Receipt Date: 20110405
  Transmission Date: 20111010
  Serious: Yes (Hospitalization)
  Sender: FDA-Public Use
  Company Number: None

PATIENT
  Sex: Male
  Weight: 93 kg

DRUGS (2)
  1. CARBOPLATIN [Suspect]
     Indication: MALIGNANT MELANOMA STAGE IV
     Dosage: 250MG DAY 1 OF 28-DAY CY IV
     Route: 042
     Dates: start: 20110322, end: 20110322
  2. PACLITAXEL [Suspect]
     Indication: MALIGNANT MELANOMA STAGE IV
     Dosage: 280MG DAY 1 OF 28-DAY CY IV
     Route: 042
     Dates: start: 20110322, end: 20110322

REACTIONS (5)
  - HYPERKALAEMIA [None]
  - DEHYDRATION [None]
  - ASTHENIA [None]
  - RENAL FAILURE ACUTE [None]
  - CONFUSIONAL STATE [None]
